FAERS Safety Report 12728640 (Version 1)
Quarter: 2016Q3

REPORT INFORMATION
  Report Type: Spontaneous
  Country: US (occurrence: US)
  Receive Date: 20160907
  Receipt Date: 20160907
  Transmission Date: 20161109
  Serious: Yes (Hospitalization)
  Sender: FDA-Public Use
  Company Number: None

PATIENT
  Age: 63 Year
  Sex: Male
  Weight: 114.5 kg

DRUGS (1)
  1. WARFARIN [Suspect]
     Active Substance: WARFARIN
     Indication: ATRIAL FIBRILLATION
     Route: 048
     Dates: end: 20160610

REACTIONS (9)
  - Pneumonia [None]
  - Aspiration [None]
  - Klebsiella bacteraemia [None]
  - Haemorrhage intracranial [None]
  - Fall [None]
  - Hemiparesis [None]
  - Subdural haematoma [None]
  - Atrial fibrillation [None]
  - Mental status changes [None]

NARRATIVE: CASE EVENT DATE: 20160610
